FAERS Safety Report 7380914-3 (Version None)
Quarter: 2011Q1

REPORT INFORMATION
  Report Type: 
  Country: None (occurrence: None)
  Receive Date: 20110329
  Receipt Date: 20110325
  Transmission Date: 20110831
  Serious: Yes (Death)
  Sender: FDA-Public Use
  Company Number: PHHY2011BR24895

PATIENT
  Sex: Female

DRUGS (5)
  1. EXELON [Suspect]
     Dosage: 18 MG/10CM^2
     Route: 062
     Dates: start: 20100701
  2. NORVASC [Concomitant]
     Dosage: UNK
  3. EXELON [Suspect]
     Indication: DEMENTIA ALZHEIMER'S TYPE
     Dosage: 9 MG/5CM^2
     Route: 062
  4. ATENOLOL [Concomitant]
     Indication: CARDIAC DISORDER
     Dosage: 1 DF, BID
  5. PANTOPRAZOLE [Concomitant]
     Indication: ABDOMINAL DISCOMFORT
     Dosage: UNK

REACTIONS (1)
  - LUNG DISORDER [None]
